FAERS Safety Report 6693990-8 (Version None)
Quarter: 2010Q2

REPORT INFORMATION
  Report Type: 
  Country: None (occurrence: None)
  Receive Date: 20100423
  Receipt Date: 20100319
  Transmission Date: 20101027
  Serious: Yes (Hospitalization, Other)
  Sender: FDA-Public Use
  Company Number: GB-BAYER-201017990GPV

PATIENT
  Age: 62 Year
  Sex: Female
  Weight: 62 kg

DRUGS (6)
  1. SORAFENIB [Suspect]
     Indication: METASTATIC RENAL CELL CARCINOMA
     Dosage: TOTAL DAILY DOSE: 800 MG
     Route: 048
     Dates: start: 20100108, end: 20100119
  2. TRAMADOL HCL [Concomitant]
     Indication: PAIN
     Dosage: TOTAL DAILY DOSE: 200 MG
     Route: 048
     Dates: start: 20100101
  3. PENICILLIN V [Concomitant]
     Indication: PREOPERATIVE CARE
     Dosage: TOTAL DAILY DOSE: 100 MG
     Route: 048
     Dates: start: 20081201
  4. DEXAMETHASONE [Concomitant]
     Dates: start: 20100120
  5. DOMPERIDONE [Concomitant]
     Indication: NAUSEA
     Route: 048
  6. SENNA [Concomitant]
     Indication: CONSTIPATION
     Dosage: AS USED: 10-20 MG
     Route: 048

REACTIONS (2)
  - DEHYDRATION [None]
  - GASTRIC VARICES [None]
